FAERS Safety Report 9477842 (Version 3)
Quarter: 2013Q4

REPORT INFORMATION
  Report Type: Spontaneous
  Country: US (occurrence: US)
  Receive Date: 20130827
  Receipt Date: 20131023
  Transmission Date: 20140711
  Serious: Yes (Death, Other)
  Sender: FDA-Public Use
  Company Number: US-AMGEN-USASP2013059509

PATIENT
  Age: 62 Year
  Sex: Female
  Weight: 63.49 kg

DRUGS (12)
  1. PROLIA [Suspect]
     Indication: OSTEOPOROSIS POSTMENOPAUSAL
     Dosage: 60 MG, Q6MO
     Route: 058
     Dates: start: 20121003, end: 20130429
  2. MULTIVITAMINS [Concomitant]
     Dosage: UNK UNK,1 TABLET QD
     Dates: start: 20111129
  3. ERGOCALCIFEROL [Concomitant]
     Dosage: 50000 UNIT, MONDAY, WEDNESDAY AND FRIDAY
     Dates: start: 20120524
  4. CATAPRES                           /00171101/ [Concomitant]
     Dosage: 0.3 MG, TID
     Dates: start: 20121210
  5. CALCIUM CARBONATE [Concomitant]
     Dosage: 1250 MG, QD
     Dates: start: 20111129
  6. SYNTHROID [Concomitant]
     Dosage: 150 MUG, QD
     Dates: start: 20120521
  7. CYANOCOBALAMIN [Concomitant]
     Dosage: 1000 MUG, QMO
     Route: 030
     Dates: start: 20081118
  8. RESTORIL                           /00393701/ [Concomitant]
     Dosage: 30 MG, QD
     Dates: start: 20121210
  9. VICODIN ES [Concomitant]
     Dosage: 1 DF, QID
     Dates: start: 20121210
  10. NITROFURANTOIN MONOHYDRATE/MACROCRYSTALS [Concomitant]
     Dosage: 100 MG, BID
     Dates: start: 20130429
  11. LOSARTAN POTASSIUM [Concomitant]
     Dosage: 1 DF, BID
     Dates: start: 20130429
  12. METOPROLOL TARTRATE [Concomitant]
     Dosage: 25 MG, BID
     Dates: start: 20130429

REACTIONS (13)
  - Intestinal obstruction [Fatal]
  - Cardiac arrest [Fatal]
  - Pneumothorax [Unknown]
  - Pulseless electrical activity [Unknown]
  - Acidosis [Unknown]
  - Hypokalaemia [Unknown]
  - Anaemia [Unknown]
  - Abdominal pain [Unknown]
  - Malaise [Unknown]
  - Loss of consciousness [Unknown]
  - Unresponsive to stimuli [Unknown]
  - Mydriasis [Unknown]
  - Electrolyte imbalance [Unknown]
